FAERS Safety Report 26154873 (Version 1)
Quarter: 2025Q4

REPORT INFORMATION
  Report Type: Spontaneous
  Country: US (occurrence: US)
  Receive Date: 20251215
  Receipt Date: 20251215
  Transmission Date: 20260117
  Serious: Yes (Hospitalization, Other)
  Sender: ACCORD
  Company Number: US-Accord-517271

PATIENT
  Age: 63 Year
  Sex: Female

DRUGS (4)
  1. CISPLATIN [Suspect]
     Active Substance: CISPLATIN
     Indication: Malignant peritoneal neoplasm
  2. TAXOL [Suspect]
     Active Substance: PACLITAXEL
     Indication: Malignant peritoneal neoplasm
     Dosage: LOW DOSE
  3. APIXABAN [Concomitant]
     Active Substance: APIXABAN
     Indication: Deep vein thrombosis
  4. CISPLATIN [Suspect]
     Active Substance: CISPLATIN
     Indication: Aplastic anaemia

REACTIONS (4)
  - Hyponatraemia [Unknown]
  - Bacteraemia [Unknown]
  - Atrial fibrillation [Unknown]
  - Off label use [Unknown]
